FAERS Safety Report 5612255-6 (Version None)
Quarter: 2008Q1

REPORT INFORMATION
  Report Type: 
  Country: None (occurrence: None)
  Receive Date: 20080131
  Receipt Date: 20080131
  Transmission Date: 20080703
  Serious: No
  Sender: FDA-Public Use
  Company Number: None

PATIENT
  Sex: Female

DRUGS (2)
  1. LAMOTRIGINE [Suspect]
     Indication: IMPULSIVE BEHAVIOUR
     Dosage: 1 TABLET ONCE DAILY PO
     Route: 048
     Dates: start: 20071228
  2. LAMOTRIGINE [Suspect]
     Indication: TRAUMATIC BRAIN INJURY
     Dosage: 1 TABLET ONCE DAILY PO
     Route: 048
     Dates: start: 20071228

REACTIONS (2)
  - ABNORMAL BEHAVIOUR [None]
  - AMNESIA [None]
